FAERS Safety Report 9070477 (Version 1)
Quarter: 2013Q1

REPORT INFORMATION
  Report Type: Report from Study
  Country: CA (occurrence: CA)
  Receive Date: 20130215
  Receipt Date: 20130215
  Transmission Date: 20140127
  Serious: Yes (Hospitalization)
  Sender: FDA-Public Use
  Company Number: CA-JNJFOC-20130203444

PATIENT
  Sex: Male
  Weight: 72 kg

DRUGS (7)
  1. REMICADE [Suspect]
     Indication: ANKYLOSING SPONDYLITIS
     Route: 042
     Dates: start: 20120416
  2. LIPITOR [Concomitant]
     Route: 048
  3. ASA [Concomitant]
     Route: 065
  4. PREDNISONE [Concomitant]
     Dosage: DOSAGE DECREASING
     Route: 048
  5. FOLIC ACID [Concomitant]
     Route: 065
  6. METHOTREXATE [Concomitant]
     Route: 048
  7. ZOPICLONE [Concomitant]
     Route: 065

REACTIONS (2)
  - Inflammatory bowel disease [Recovering/Resolving]
  - Drug effect incomplete [Unknown]
